FAERS Safety Report 5964874-5 (Version None)
Quarter: 2008Q4

REPORT INFORMATION
  Report Type: 
  Country: None (occurrence: None)
  Receive Date: 20081125
  Receipt Date: 20081120
  Transmission Date: 20090506
  Serious: Yes (Hospitalization, Other)
  Sender: FDA-Public Use
  Company Number: US-BAYER-200813591BCC

PATIENT
  Age: 72 Year
  Sex: Female
  Weight: 59 kg

DRUGS (8)
  1. ASPIRIN [Suspect]
     Indication: ANTICOAGULANT THERAPY
     Dosage: TOTAL DAILY DOSE: 81 MG  UNIT DOSE: 81 MG
     Route: 048
     Dates: start: 19990720, end: 20080810
  2. ASPIRIN [Suspect]
     Dosage: TOTAL DAILY DOSE: 81 MG  UNIT DOSE: 81 MG
     Route: 048
     Dates: start: 20080825, end: 20080829
  3. SYNTHROID [Concomitant]
  4. NEXIUM [Concomitant]
  5. TWIN LAB ONE A DAY W/O IRON MULTIVITAMIN [Concomitant]
  6. COUNTRY LIFE CALCIUM [Concomitant]
  7. GLUCOSAMINE [Concomitant]
  8. CHONDROITIN [Concomitant]

REACTIONS (13)
  - ABDOMINAL DISTENSION [None]
  - ABDOMINAL PAIN UPPER [None]
  - APHAGIA [None]
  - COELIAC DISEASE [None]
  - DEAFNESS UNILATERAL [None]
  - FACIAL PALSY [None]
  - HERPES ZOSTER [None]
  - HYPOPHAGIA [None]
  - IMPAIRED GASTRIC EMPTYING [None]
  - NERVE INJURY [None]
  - OROPHARYNGEAL DISCOMFORT [None]
  - SPEECH DISORDER [None]
  - VOMITING [None]
